FAERS Safety Report 5109029-1 (Version None)
Quarter: 2006Q3

REPORT INFORMATION
  Report Type: 
  Country: None (occurrence: None)
  Receive Date: 20060731
  Receipt Date: 20060502
  Transmission Date: 20061208
  Serious: No
  Sender: FDA-Public Use
  Company Number: 2006PV013144

PATIENT
  Age: 69 Year
  Sex: Female
  Weight: 126.1 kg

DRUGS (4)
  1. BYETTA [Suspect]
     Indication: DIABETES MELLITUS NON-INSULIN-DEPENDENT
     Dosage: 10 MCG; 10 MCG; 5 MCG  : BID; SC
     Route: 058
     Dates: start: 20060406, end: 20060424
  2. BYETTA [Suspect]
     Indication: DIABETES MELLITUS NON-INSULIN-DEPENDENT
     Dosage: 10 MCG; 10 MCG; 5 MCG  : BID; SC
     Route: 058
     Dates: start: 20060227
  3. BYETTA [Suspect]
     Indication: DIABETES MELLITUS NON-INSULIN-DEPENDENT
     Dosage: 10 MCG; 10 MCG; 5 MCG  : BID; SC
     Route: 058
     Dates: start: 20060425
  4. GLUCOPHAGE [Suspect]
     Indication: DIABETES MELLITUS NON-INSULIN-DEPENDENT
     Dosage: 500 MG;BID;PO
     Route: 048
     Dates: start: 20050101, end: 20060301

REACTIONS (4)
  - DIZZINESS [None]
  - DYSGEUSIA [None]
  - NAUSEA [None]
  - PARAESTHESIA [None]
